FAERS Safety Report 12422239 (Version 1)
Quarter: 2016Q2

REPORT INFORMATION
  Report Type: Spontaneous
  Country: US (occurrence: US)
  Receive Date: 20160601
  Receipt Date: 20160601
  Transmission Date: 20160815
  Serious: Yes (Other)
  Sender: FDA-Public Use
  Company Number: US-BRISTOL-MYERS SQUIBB COMPANY-BMS-2016-039232

PATIENT
  Sex: Female
  Weight: 56.69 kg

DRUGS (3)
  1. ELIQUIS [Suspect]
     Active Substance: APIXABAN
     Indication: CARDIOMYOPATHY
     Dosage: 5 MG, BID
     Route: 048
  2. ACCUPRIL [Concomitant]
     Active Substance: QUINAPRIL HYDROCHLORIDE
     Indication: PRODUCT USED FOR UNKNOWN INDICATION
     Route: 065
  3. ELIQUIS [Suspect]
     Active Substance: APIXABAN
     Dosage: 2.5 MG, BID
     Route: 048

REACTIONS (7)
  - Lip swelling [Unknown]
  - Anaemia [Unknown]
  - Off label use [Unknown]
  - Transfusion [Unknown]
  - Eyelid oedema [Unknown]
  - Rash erythematous [Unknown]
  - Menorrhagia [Unknown]
